FAERS Safety Report 14193116 (Version 1)
Quarter: 2017Q4

REPORT INFORMATION
  Report Type: Spontaneous
  Country: US (occurrence: US)
  Receive Date: 20171115
  Receipt Date: 20171115
  Transmission Date: 20180321
  Serious: No
  Sender: FDA-Public Use
  Company Number: US-BAUSCH-BL-2016-026909

PATIENT
  Age: 55 Year
  Sex: Female
  Weight: 74.91 kg

DRUGS (1)
  1. XENAZINE [Suspect]
     Active Substance: TETRABENAZINE
     Indication: TARDIVE DYSKINESIA
     Route: 048

REACTIONS (2)
  - Drug dose omission [Unknown]
  - Off label use [Not Recovered/Not Resolved]
